FAERS Safety Report 24626948 (Version 2)
Quarter: 2024Q4

REPORT INFORMATION
  Report Type: Report from Study
  Country: GB (occurrence: GB)
  Receive Date: 20241115
  Receipt Date: 20241121
  Transmission Date: 20250115
  Serious: Yes (Hospitalization)
  Sender: ALEXION PHARMACEUTICALS
  Company Number: GB-AstraZeneca-CH-00745313A

PATIENT

DRUGS (4)
  1. ULTOMIRIS [Suspect]
     Active Substance: RAVULIZUMAB-CWVZ
     Indication: Haemolytic uraemic syndrome
     Dosage: 600 MILLIGRAM, Q4W
  2. ULTOMIRIS [Suspect]
     Active Substance: RAVULIZUMAB-CWVZ
     Dosage: 600 MILLIGRAM, Q4W
  3. ULTOMIRIS [Suspect]
     Active Substance: RAVULIZUMAB-CWVZ
     Dosage: 600 MILLIGRAM, Q4W
  4. ULTOMIRIS [Suspect]
     Active Substance: RAVULIZUMAB-CWVZ
     Dosage: 600 MILLIGRAM, Q4W

REACTIONS (4)
  - Enterovirus infection [Unknown]
  - Norovirus infection [Unknown]
  - Fatigue [Unknown]
  - Off label use [Unknown]
